FAERS Safety Report 6801716-X (Version None)
Quarter: 2010Q2

REPORT INFORMATION
  Report Type: 
  Country: None (occurrence: None)
  Receive Date: 20100629
  Receipt Date: 20100616
  Transmission Date: 20101027
  Serious: Yes (Other)
  Sender: FDA-Public Use
  Company Number: JP-PFIZER INC-2010075080

PATIENT

DRUGS (4)
  1. VARENICLINE TARTRATE [Suspect]
     Dosage: 0.5 MG, 1X/DAY
     Route: 048
  2. PL [Concomitant]
  3. LOXONIN [Concomitant]
  4. MEIACT [Concomitant]

REACTIONS (1)
  - BLOOD PRESSURE DECREASED [None]
